FAERS Safety Report 9026999 (Version 2)
Quarter: 2013Q3

REPORT INFORMATION
  Report Type: Spontaneous
  Country: US (occurrence: US)
  Receive Date: 20130123
  Receipt Date: 20130712
  Transmission Date: 20140515
  Serious: No
  Sender: FDA-Public Use
  Company Number: US-009507513-1301USA005525

PATIENT
  Sex: 0
  Weight: 107.94 kg

DRUGS (2)
  1. NEXPLANON [Suspect]
     Dosage: 1 ROD/EVERY THREE YEARS
     Route: 059
     Dates: start: 20130109, end: 20130109
  2. NEXPLANON [Suspect]
     Dosage: UNK
     Dates: start: 20130109

REACTIONS (4)
  - Device difficult to use [Recovered/Resolved]
  - Medical device complication [Unknown]
  - No adverse event [Unknown]
  - Product quality issue [Unknown]
